FAERS Safety Report 8494019-1 (Version None)
Quarter: 2012Q3

REPORT INFORMATION
  Report Type: 
  Country: None (occurrence: None)
  Receive Date: 20120709
  Receipt Date: 20120629
  Transmission Date: 20120928
  Serious: Yes (Hospitalization)
  Sender: FDA-Public Use
  Company Number: US-BIOGENIDEC-2012BI023239

PATIENT
  Age: 53 Year
  Sex: Female

DRUGS (1)
  1. AVONEX [Suspect]
     Indication: MULTIPLE SCLEROSIS
     Route: 030
     Dates: start: 20000220

REACTIONS (7)
  - UTERINE DILATION AND CURETTAGE [None]
  - MULTIPLE SCLEROSIS RELAPSE [None]
  - HYSTERECTOMY [None]
  - BLOOD TEST ABNORMAL [None]
  - KNEE OPERATION [None]
  - BACK DISORDER [None]
  - HAEMORRHAGE [None]
